FAERS Safety Report 11770622 (Version 4)
Quarter: 2016Q4

REPORT INFORMATION
  Report Type: Spontaneous
  Country: US (occurrence: US)
  Receive Date: 20151123
  Receipt Date: 20161028
  Transmission Date: 20170206
  Serious: No
  Sender: FDA-Public Use
  Company Number: US-AKRIMAX-TIR-2015-0368

PATIENT
  Age: 55 Year
  Sex: Female
  Weight: 61.74 kg

DRUGS (9)
  1. TIROSINT [Suspect]
     Active Substance: LEVOTHYROXINE SODIUM
     Indication: THYROIDECTOMY
     Dosage: ONCE DAILY
     Route: 048
     Dates: start: 201602, end: 20160309
  2. TIROSINT [Suspect]
     Active Substance: LEVOTHYROXINE SODIUM
     Indication: RADIOACTIVE IODINE THERAPY
     Dosage: ONCE DAILY
     Route: 048
     Dates: start: 20160309
  3. TIROSINT [Suspect]
     Active Substance: LEVOTHYROXINE SODIUM
     Dosage: ONCE DAILY
     Route: 048
     Dates: start: 20160917
  4. TIROSINT [Suspect]
     Active Substance: LEVOTHYROXINE SODIUM
     Indication: HYPOTHYROIDISM
     Route: 048
     Dates: start: 2013, end: 2013
  5. TIROSINT [Suspect]
     Active Substance: LEVOTHYROXINE SODIUM
     Indication: HYPOTHYROIDISM
     Dosage: 88MCG ONCE DAILY
     Route: 048
     Dates: start: 20151020
  6. TIROSINT [Suspect]
     Active Substance: LEVOTHYROXINE SODIUM
     Indication: RADIOACTIVE IODINE THERAPY
  7. TIROSINT [Suspect]
     Active Substance: LEVOTHYROXINE SODIUM
     Dosage: ONCE DAILY
     Route: 048
     Dates: start: 20160908
  8. TIROSINT [Suspect]
     Active Substance: LEVOTHYROXINE SODIUM
     Indication: THYROIDECTOMY
  9. TIROSINT [Suspect]
     Active Substance: LEVOTHYROXINE SODIUM
     Dosage: ONCE DAILY
     Route: 048
     Dates: start: 201606

REACTIONS (26)
  - Feeling jittery [Recovering/Resolving]
  - Blood cholesterol increased [Unknown]
  - Muscular weakness [Unknown]
  - Thyroid function test abnormal [Unknown]
  - Product measured potency issue [Unknown]
  - Asthenia [Recovered/Resolved]
  - Malaise [Unknown]
  - Weight increased [Recovered/Resolved]
  - Hypothyroidism [Unknown]
  - Hyperhidrosis [Unknown]
  - Insomnia [Unknown]
  - Headache [Recovered/Resolved]
  - Peripheral swelling [Not Recovered/Not Resolved]
  - Product quality issue [Unknown]
  - Constipation [Unknown]
  - Blood thyroid stimulating hormone increased [Unknown]
  - Fatigue [Recovering/Resolving]
  - Crying [Recovering/Resolving]
  - Hypothyroidism [Recovered/Resolved]
  - Sleep disorder [Recovered/Resolved]
  - Product physical issue [Unknown]
  - Muscular weakness [Recovered/Resolved]
  - Abdominal distension [Recovered/Resolved]
  - Peripheral swelling [Recovering/Resolving]
  - Somnolence [Recovering/Resolving]
  - Somnolence [Not Recovered/Not Resolved]

NARRATIVE: CASE EVENT DATE: 2013
